FAERS Safety Report 16102797 (Version 2)
Quarter: 2019Q3

REPORT INFORMATION
  Report Type: Spontaneous
  Country: US (occurrence: US)
  Receive Date: 20190321
  Receipt Date: 20190718
  Transmission Date: 20191004
  Serious: No
  Sender: FDA-Public Use
  Company Number: US-009507513-1903USA004607

PATIENT
  Sex: Female

DRUGS (2)
  1. TEMODAR [Suspect]
     Active Substance: TEMOZOLOMIDE
     Indication: BRAIN NEOPLASM
     Dosage: 10 MILLIGRAM, QD
     Route: 048
     Dates: start: 201811
  2. TEMODAR [Suspect]
     Active Substance: TEMOZOLOMIDE
     Dosage: 2 CAPSULES DAILY FOR TOTAL OF 360 MG FOR 5 DAYS AND 23 DAYS OFF OF 28 DAYS CYCLE
     Route: 048

REACTIONS (2)
  - Adverse event [Unknown]
  - Nausea [Unknown]
